FAERS Safety Report 5272298-1 (Version None)
Quarter: 2007Q1

REPORT INFORMATION
  Report Type: 
  Country: None (occurrence: None)
  Receive Date: 20070322
  Receipt Date: 20070313
  Transmission Date: 20070707
  Serious: Yes (Other)
  Sender: FDA-Public Use
  Company Number: AT-JNJFOC-20070301041

PATIENT
  Sex: Female

DRUGS (5)
  1. DURAGESIC-100 [Suspect]
     Indication: SPINAL FRACTURE
     Route: 062
  2. DURAGESIC-100 [Suspect]
     Indication: OSTEOPOROSIS
     Route: 062
  3. REQUIP [Concomitant]
     Indication: PARKINSONISM
     Route: 048
  4. STALEVO 100 [Concomitant]
     Indication: PARKINSONISM
     Route: 065
  5. OXYCONTIN [Concomitant]
     Route: 065

REACTIONS (2)
  - CHOREA [None]
  - RESTLESSNESS [None]
